FAERS Safety Report 8003042-2 (Version None)
Quarter: 2011Q4

REPORT INFORMATION
  Report Type: 
  Country: None (occurrence: None)
  Receive Date: 20111219
  Receipt Date: 20111208
  Transmission Date: 20120403
  Serious: Yes (Hospitalization)
  Sender: FDA-Public Use
  Company Number: 2011120054

PATIENT
  Sex: Female

DRUGS (1)
  1. MUSE [Suspect]
     Indication: ACCIDENTAL EXPOSURE
     Dosage: ORAL
     Route: 048

REACTIONS (5)
  - HYPOAESTHESIA ORAL [None]
  - EXPOSURE VIA PARTNER [None]
  - SWOLLEN TONGUE [None]
  - ACCIDENTAL EXPOSURE [None]
  - ANAPHYLACTIC REACTION [None]
